FAERS Safety Report 20415672 (Version 1)
Quarter: 2022Q1

REPORT INFORMATION
  Report Type: Spontaneous
  Country: FR (occurrence: FR)
  Receive Date: 20220202
  Receipt Date: 20220202
  Transmission Date: 20220423
  Serious: Yes (Hospitalization, Other)
  Sender: FDA-Public Use
  Company Number: FR-Accord-252206

PATIENT
  Age: 59 Year
  Sex: Female

DRUGS (2)
  1. TEMOZOLOMIDE [Suspect]
     Active Substance: TEMOZOLOMIDE
     Indication: Glioblastoma
     Dosage: SECOND ADJUVANT TMZ CYCLE (200  MG/?M2)
  2. METHYLPREDNISOLONE [Concomitant]
     Active Substance: METHYLPREDNISOLONE
     Indication: Glioblastoma
     Dosage: FOR A SHORT PERIOD BEFORE AND DURING CHEMORADIATION.
     Route: 048

REACTIONS (1)
  - Progressive multifocal leukoencephalopathy [Unknown]
